FAERS Safety Report 8609096-4 (Version None)
Quarter: 2012Q3

REPORT INFORMATION
  Report Type: 
  Country: None (occurrence: None)
  Receive Date: 20120821
  Receipt Date: 20120814
  Transmission Date: 20120928
  Serious: Yes (Other)
  Sender: FDA-Public Use
  Company Number: US-JNJFOC-20120521100

PATIENT
  Age: 67 Year
  Sex: Female

DRUGS (4)
  1. FLOXURIDINE [Suspect]
     Indication: OVARIAN CANCER RECURRENT
     Dosage: 4 CYCLES
     Route: 065
  2. CISPLATIN [Suspect]
     Dosage: 4 CYCLES
     Route: 033
  3. DOXORUBICIN HYDROCHLORIDE [Suspect]
     Indication: OVARIAN CANCER RECURRENT
     Dosage: TREATMENT FOR 8 YEARS AT INTERVALS OF 6-8 WEEKS; CUMULATIVE DOSE-1800 MG/M2
     Route: 042
  4. CISPLATIN [Suspect]
     Indication: OVARIAN CANCER RECURRENT
     Dosage: 4 CYCLES
     Route: 065

REACTIONS (3)
  - LIP AND/OR ORAL CAVITY CANCER [None]
  - BREAST NEOPLASM [None]
  - AXILLARY MASS [None]
